FAERS Safety Report 4283223-4 (Version None)
Quarter: 2004Q1

REPORT INFORMATION
  Report Type: 
  Country: None (occurrence: None)
  Receive Date: 20040129
  Receipt Date: 20040115
  Transmission Date: 20041129
  Serious: Yes (Hospitalization)
  Sender: FDA-Public Use
  Company Number: 2003CG01696

PATIENT
  Age: 43 Year
  Sex: Female

DRUGS (2)
  1. TENORMIN [Suspect]
     Indication: HYPERTENSION
     Dates: start: 19920101, end: 19940101
  2. AVLOCARDYL [Suspect]
     Indication: HYPERTENSION
     Dosage: 40 MG QD PO
     Route: 048
     Dates: start: 19940101

REACTIONS (4)
  - COLD SWEAT [None]
  - ERYTHEMA NODOSUM [None]
  - PARAESTHESIA [None]
  - PYREXIA [None]
